FAERS Safety Report 10241633 (Version 1)
Quarter: 2014Q2

REPORT INFORMATION
  Report Type: Spontaneous
  Country: RO (occurrence: RO)
  Receive Date: 20140617
  Receipt Date: 20140617
  Transmission Date: 20141212
  Serious: Yes (Hospitalization)
  Sender: FDA-Public Use
  Company Number: RO-ACTAVIS-2014-13544

PATIENT
  Age: 71 Year
  Sex: Female

DRUGS (3)
  1. PANTOPRAZOLE (UNKNOWN) [Suspect]
     Indication: HELICOBACTER INFECTION
     Dosage: 20 MG, BID
     Route: 065
  2. CLARITHROMYCIN (UNKNOWN) [Suspect]
     Indication: HELICOBACTER INFECTION
     Dosage: 500 MG, BID
     Route: 065
  3. AMOXICILLIN (UNKNOWN) [Suspect]
     Indication: HELICOBACTER INFECTION
     Dosage: 1 G, BID
     Route: 065

REACTIONS (2)
  - Pseudomembranous colitis [Recovered/Resolved]
  - Clostridium difficile infection [Recovered/Resolved]
